FAERS Safety Report 16748336 (Version 1)
Quarter: 2019Q3

REPORT INFORMATION
  Report Type: Spontaneous
  Country: DK (occurrence: DK)
  Receive Date: 20190828
  Receipt Date: 20190828
  Transmission Date: 20191005
  Serious: Yes (Other)
  Sender: FDA-Public Use
  Company Number: DK-TAKEDA-2019TUS049601

PATIENT
  Age: 23 Year
  Sex: Male

DRUGS (2)
  1. ENTYVIO [Suspect]
     Active Substance: VEDOLIZUMAB
     Indication: CROHN^S DISEASE
     Dosage: 300 MILLIGRAM, Q2WEEKS
     Route: 042
     Dates: start: 20190723, end: 20190730
  2. ISOTRETINOIN. [Concomitant]
     Active Substance: ISOTRETINOIN
     Indication: PAIN
     Dosage: 20 MILLIGRAM, QD
     Route: 048
     Dates: start: 20190711

REACTIONS (3)
  - Paraesthesia [Not Recovered/Not Resolved]
  - Polyneuropathy [Not Recovered/Not Resolved]
  - Pain [Not Recovered/Not Resolved]

NARRATIVE: CASE EVENT DATE: 20190730
